FAERS Safety Report 15434878 (Version 1)
Quarter: 2018Q3

REPORT INFORMATION
  Report Type: Spontaneous
  Country: US (occurrence: US)
  Receive Date: 20180923
  Receipt Date: 20180923
  Transmission Date: 20181010
  Serious: Yes (Other)
  Sender: FDA-Public Use
  Company Number: None

PATIENT
  Age: 66 Year
  Sex: Female

DRUGS (8)
  1. COSENTYX [Concomitant]
     Active Substance: SECUKINUMAB
  2. FOLIC ACID. [Concomitant]
     Active Substance: FOLIC ACID
  3. SINGULAIRE [Concomitant]
  4. PROAIR HFA [Concomitant]
     Active Substance: ALBUTEROL SULFATE
  5. ADVIL [Concomitant]
     Active Substance: IBUPROFEN
  6. METHOTREXATE. [Suspect]
     Active Substance: METHOTREXATE
     Indication: PSORIATIC ARTHROPATHY
     Dosage: ?          QUANTITY:6 TABLET(S);OTHER FREQUENCY:ONCE A WEEK;?
     Route: 048
  7. RESTASIS [Concomitant]
     Active Substance: CYCLOSPORINE
  8. VITAMIN D [Concomitant]
     Active Substance: CHOLECALCIFEROL

REACTIONS (3)
  - Dry eye [None]
  - Vision blurred [None]
  - Cataract [None]

NARRATIVE: CASE EVENT DATE: 20180921
